FAERS Safety Report 24746191 (Version 1)
Quarter: 2024Q4

REPORT INFORMATION
  Report Type: Spontaneous
  Country: GB (occurrence: GB)
  Receive Date: 20241218
  Receipt Date: 20241218
  Transmission Date: 20250115
  Serious: Yes (Other)
  Sender: DEXCEL
  Company Number: None

PATIENT
  Age: 76 Year
  Sex: Female
  Weight: 74 kg

DRUGS (7)
  1. OMEPRAZOLE [Suspect]
     Active Substance: OMEPRAZOLE
  2. NITROFURANTOINNITROFURANTOIN (Specific Substance SUB97) [Concomitant]
     Dosage: TAKE ONE TWICE DAILY
     Dates: start: 20241126, end: 20241129
  3. INSULIN HUMAN [Concomitant]
     Active Substance: INSULIN HUMAN
     Dosage: USE AS DIRECTED
     Dates: start: 20240111
  4. LOSARTANLOSARTAN (Specific Substance SUB7199) [Concomitant]
     Dosage: TAKE ONE DAILY
     Dates: start: 20240111
  5. SITAGLIPTINSITAGLIPTIN (Specific Substance SUB9149) [Concomitant]
     Dosage: TAKE ONE DAILY
     Dates: start: 20240111
  6. SPIRONOLACTONESPIRONOLACTONE (Specific Substance SUB435) [Concomitant]
     Indication: Ascites
     Dosage: ONE A DAY FOR ASCITES
     Dates: start: 20241112
  7. CARVEDILOLCARVEDILOL (Specific Substance SUB4679) [Concomitant]
     Dosage: 1 DAILY
     Dates: start: 20241122

REACTIONS (1)
  - Confusional state [Recovered/Resolved]
